FAERS Safety Report 7492648-5 (Version None)
Quarter: 2011Q2

REPORT INFORMATION
  Report Type: 
  Country: None (occurrence: None)
  Receive Date: 20110519
  Receipt Date: 20110428
  Transmission Date: 20111010
  Serious: Yes (Other)
  Sender: FDA-Public Use
  Company Number: US-BAYER-200934253NA

PATIENT
  Sex: Male
  Weight: 96 kg

DRUGS (18)
  1. IMDUR [Concomitant]
     Route: 048
  2. MORPHINE [Concomitant]
     Indication: PREMEDICATION
     Dosage: 10 MG, UNK
     Route: 030
  3. TRASYLOL [Suspect]
     Indication: CORONARY ARTERY BYPASS
  4. ATENOLOL [Concomitant]
     Route: 048
  5. XYLOCAINE [Concomitant]
     Indication: PREMEDICATION
     Dosage: 2 MG, Q1MIN
     Route: 042
  6. PRAVACHOL [Concomitant]
     Route: 048
  7. ATIVAN [Concomitant]
     Route: 048
  8. DOBUTAMINE HYDROCHLORIDE [Concomitant]
     Indication: PREMEDICATION
     Dosage: 3 MG/KG/MIN
     Route: 042
  9. ANCEF [Concomitant]
     Dosage: 1 G, UNK
     Route: 042
     Dates: start: 19971103
  10. ZESTRIL [Concomitant]
     Route: 048
  11. NITROSTAT [Concomitant]
     Dosage: 0.2 MG, Q1HR, PRN
     Route: 048
  12. ACETYLSALICYLIC ACID SRT [Concomitant]
     Route: 048
  13. AMICAR [Concomitant]
     Dosage: UNK
     Route: 042
     Dates: start: 19971103
  14. LASIX [Concomitant]
     Route: 048
  15. REGLAN [Concomitant]
     Indication: PREMEDICATION
     Dosage: 10 MG, UNK
     Route: 048
  16. SCOPOLAMINE [Concomitant]
     Indication: PREMEDICATION
     Dosage: 0.4 MG, UNK
     Route: 030
  17. PROTAMINE SULFATE [Concomitant]
     Dosage: UNK
     Dates: start: 19971103
  18. HEPARIN [Concomitant]
     Dosage: UNK
     Dates: start: 19971103

REACTIONS (12)
  - PAIN [None]
  - RENAL INJURY [None]
  - MULTI-ORGAN FAILURE [None]
  - ANXIETY [None]
  - DEPRESSION [None]
  - ANHEDONIA [None]
  - RENAL FAILURE [None]
  - EMOTIONAL DISTRESS [None]
  - UNEVALUABLE EVENT [None]
  - INJURY [None]
  - FEAR [None]
  - NERVOUSNESS [None]
